FAERS Safety Report 16960620 (Version 3)
Quarter: 2019Q4

REPORT INFORMATION
  Report Type: Spontaneous
  Country: DE (occurrence: DE)
  Receive Date: 20191025
  Receipt Date: 20191212
  Transmission Date: 20200122
  Serious: Yes (Other)
  Sender: FDA-Public Use
  Company Number: DE-AMICUS THERAPEUTICS, INC.-AMI_609

PATIENT
  Age: 47 Year
  Sex: Female

DRUGS (11)
  1. GALAFOLD [Suspect]
     Active Substance: MIGALASTAT HYDROCHLORIDE
     Indication: FABRY^S DISEASE
     Dosage: 123 MILLIGRAM, QOD
     Route: 065
     Dates: start: 20170501, end: 201908
  2. ALLOPURINOL. [Concomitant]
     Active Substance: ALLOPURINOL
     Indication: PRODUCT USED FOR UNKNOWN INDICATION
     Dosage: 100 MILLIGRAM
     Dates: start: 201604
  3. PANTOPRAZOLE [Concomitant]
     Active Substance: PANTOPRAZOLE
     Indication: PRODUCT USED FOR UNKNOWN INDICATION
     Dosage: 40 MILLIGRAM
     Dates: start: 201604
  4. SIMVASTATIN. [Concomitant]
     Active Substance: SIMVASTATIN
     Indication: PRODUCT USED FOR UNKNOWN INDICATION
     Dosage: 20 MILLIGRAM
     Dates: start: 201312
  5. DELIX                              /00885601/ [Concomitant]
     Active Substance: RAMIPRIL
     Indication: PRODUCT USED FOR UNKNOWN INDICATION
     Dosage: 2.5 MILLIGRAM
     Dates: start: 201901
  6. CAPTOPRIL. [Concomitant]
     Active Substance: CAPTOPRIL
     Indication: PRODUCT USED FOR UNKNOWN INDICATION
     Dosage: 6.25 MILLIGRAM
     Dates: start: 201604, end: 201812
  7. PHENPROCOUMON [Concomitant]
     Active Substance: PHENPROCOUMON
     Indication: PRODUCT USED FOR UNKNOWN INDICATION
     Dosage: UNK
     Dates: start: 201604
  8. FLUOR-VIGANTOLETTEN                /01518601/ [Concomitant]
     Indication: PRODUCT USED FOR UNKNOWN INDICATION
     Dosage: 1000 INTERNATIONAL UNIT, QOD
     Dates: start: 201805
  9. FUROSEMID                          /00032601/ [Concomitant]
     Active Substance: FUROSEMIDE
     Indication: PRODUCT USED FOR UNKNOWN INDICATION
     Dosage: 20 MILLIGRAM
     Dates: start: 201604
  10. VITAMIN K ANTAGONISTS [Concomitant]
     Active Substance: UNSPECIFIED INGREDIENT
     Indication: ADJUVANT THERAPY
     Dosage: UNK
  11. LEVETIRACETAM. [Concomitant]
     Active Substance: LEVETIRACETAM
     Indication: PRODUCT USED FOR UNKNOWN INDICATION
     Dosage: 1000 MILLIGRAM
     Dates: start: 201902

REACTIONS (11)
  - Cerebral infarction [Unknown]
  - Cardiac failure [Unknown]
  - Blood lactic acid increased [Unknown]
  - MELAS syndrome [Unknown]
  - Left ventricular enlargement [Unknown]
  - Pre-existing condition improved [Unknown]
  - Mental impairment [Unknown]
  - General physical health deterioration [Unknown]
  - Tricuspid valve incompetence [Unknown]
  - White matter lesion [Unknown]
  - Off label use [Unknown]

NARRATIVE: CASE EVENT DATE: 20170501
